FAERS Safety Report 15976070 (Version 2)
Quarter: 2019Q2

REPORT INFORMATION
  Report Type: Spontaneous
  Country: US (occurrence: US)
  Receive Date: 20190218
  Receipt Date: 20190605
  Transmission Date: 20190711
  Serious: Yes (Hospitalization, Other)
  Sender: FDA-Public Use
  Company Number: US-PFIZER INC-2016297647

PATIENT
  Age: 81 Year
  Sex: Female
  Weight: 65.3 kg

DRUGS (27)
  1. DETROL [Suspect]
     Active Substance: TOLTERODINE TARTRATE
     Indication: URINARY TRACT DISORDER
     Dosage: 2 MG, 2X/DAY
     Route: 048
  2. DETROL [Suspect]
     Active Substance: TOLTERODINE TARTRATE
     Indication: BLOOD PRESSURE ABNORMAL
     Dosage: UNK
  3. ACIPHEX [Concomitant]
     Active Substance: RABEPRAZOLE SODIUM
     Dosage: 20 MG, 2X/DAY
  4. DYAZIDE [Concomitant]
     Active Substance: HYDROCHLOROTHIAZIDE\TRIAMTERENE
     Dosage: 1 DF, 1X/DAY(37.5-25 MG)
  5. MAVIK [Concomitant]
     Active Substance: TRANDOLAPRIL
     Dosage: 4 MG, DAILY
  6. CLARINEX [Concomitant]
     Active Substance: DESLORATADINE
     Dosage: 10 MG, AS NEEDED
     Route: 048
  7. TRIAMCINOLONE ACETONIDE. [Concomitant]
     Active Substance: TRIAMCINOLONE ACETONIDE
     Dosage: 0.025%, 2 - 4 TIMES A DAY
  8. LIPITOR [Concomitant]
     Active Substance: ATORVASTATIN CALCIUM
     Dosage: 10 MG, 1X/DAY
  9. IRON [Concomitant]
     Active Substance: IRON
     Dosage: 2 DF, DAILY
  10. ASPIRIN 81 [Concomitant]
     Active Substance: ASPIRIN
     Dosage: 81 MG, 1X/DAY
  11. SOTALOL. [Concomitant]
     Active Substance: SOTALOL
     Dosage: 80 MG, 2X/DAY
  12. MAVIK [Concomitant]
     Active Substance: TRANDOLAPRIL
     Dosage: 8 MG, DAILY
  13. CALCIUM CITRATE/COLECALCIFEROL/MAGNESIUM/ZINC [Concomitant]
     Dosage: 2 DF, DAILY
  14. MUPIROCIN. [Concomitant]
     Active Substance: MUPIROCIN
     Dosage: 2% TWICE DAILY FOR 10 DAYS
  15. FERROUS SULFATE. [Concomitant]
     Active Substance: FERROUS SULFATE
     Dosage: 325 MG, DAILY(W/BREAKFAST)
     Route: 048
  16. LEVOTHROID [Concomitant]
     Active Substance: LEVOTHYROXINE SODIUM
     Dosage: 125 UG, DAILY
  17. TYLENOL WITH CODEINE [Concomitant]
     Active Substance: ACETAMINOPHEN\CODEINE PHOSPHATE
     Dosage: 30 MG, AS NEEDED (ONE 6 TO 8 HOURS AS NEEDED)
  18. CALCIUM, MAGNESIUM + VITAMIN D3 [Concomitant]
     Active Substance: CALCIUM\CHOLECALCIFEROL\MAGNESIUM
     Dosage: (185-50-100) SUGGESTED 2X DAY
  19. MIACALCIN [Concomitant]
     Active Substance: CALCITONIN SALMON
     Dosage: 2 DF, DAILY (ONE SPRAY A DAY ALTERNATE LEFT AND RIGHT NOSTRIL)
     Route: 045
  20. COREG [Concomitant]
     Active Substance: CARVEDILOL
     Dosage: 3.125 MG, 2X/DAY
  21. MOVANTIK [Concomitant]
     Active Substance: NALOXEGOL OXALATE
     Dosage: 25 MG, 1X/DAY [ONE BEFORE BREAKFAST]
  22. NEURONTIN [Concomitant]
     Active Substance: GABAPENTIN
     Dosage: 400 MG, 3X/DAY
  23. AMLODIPINE [Concomitant]
     Active Substance: AMLODIPINE BESYLATE
     Dosage: 2.5 MG, 1X/DAY
  24. GABAPENTIN. [Concomitant]
     Active Substance: GABAPENTIN
     Dosage: 100 MG,
  25. DYAZIDE [Concomitant]
     Active Substance: HYDROCHLOROTHIAZIDE\TRIAMTERENE
     Dosage: 1 DF, 2X/DAY(37.5-25 MG)
  26. FERROUS SULFATE. [Concomitant]
     Active Substance: FERROUS SULFATE
     Dosage: 90 MG, DAILY
  27. LEVOTHYROXINE. [Concomitant]
     Active Substance: LEVOTHYROXINE
     Dosage: 125 UG, 1X/DAY

REACTIONS (2)
  - Clostridium difficile infection [Recovered/Resolved]
  - Influenza [Not Recovered/Not Resolved]

NARRATIVE: CASE EVENT DATE: 20190205
